FAERS Safety Report 22202994 (Version 1)
Quarter: 2023Q2

REPORT INFORMATION
  Report Type: Spontaneous
  Country: US (occurrence: None)
  Receive Date: 20230412
  Receipt Date: 20230412
  Transmission Date: 20230721
  Serious: No
  Sender: FDA-Public Use
  Company Number: None

PATIENT
  Sex: Male

DRUGS (1)
  1. GENOTROPIN [Suspect]
     Active Substance: SOMATROPIN
     Indication: Short stature
     Dosage: OTHER FREQUENCY : NIGHTLY;?
     Route: 058
     Dates: start: 20230220

REACTIONS (2)
  - Product contamination physical [None]
  - Growing pains [None]
